FAERS Safety Report 11131233 (Version 1)
Quarter: 2015Q2

REPORT INFORMATION
  Report Type: Other
  Country: IT (occurrence: IT)
  Receive Date: 20150522
  Receipt Date: 20150522
  Transmission Date: 20150821
  Serious: Yes (Hospitalization, Other)
  Sender: FDA-Public Use
  Company Number: IT-SUN PHARMACEUTICAL INDUSTRIES LTD-2015SUN01183

PATIENT

DRUGS (25)
  1. CARBOPLATIN. [Suspect]
     Active Substance: CARBOPLATIN
     Dosage: 480 MG, UNK
     Route: 042
     Dates: start: 20140704
  2. CARBOPLATIN. [Suspect]
     Active Substance: CARBOPLATIN
     Dosage: 480 MG, UNK
     Route: 042
     Dates: start: 20140919
  3. AVASTIN [Suspect]
     Active Substance: BEVACIZUMAB
     Dosage: 820 MG, UNK
     Route: 042
     Dates: start: 20140829
  4. AVASTIN [Suspect]
     Active Substance: BEVACIZUMAB
     Dosage: 820 MG, UNK
     Route: 042
     Dates: start: 20150307
  5. PANTORC [Concomitant]
     Active Substance: PANTOPRAZOLE SODIUM
     Dosage: 1 DF
     Route: 042
  6. TAXOL [Suspect]
     Active Substance: PACLITAXEL
     Dosage: 260 MG, 6TH CYCLE
     Route: 042
     Dates: start: 20141010
  7. DEXAMETHASONE-21-DIHYDROGEN PHOSPHATE DISODIUM SALT [Concomitant]
     Dosage: 20 MG
     Route: 042
  8. TAXOL [Suspect]
     Active Substance: PACLITAXEL
     Indication: OVARIAN CANCER
     Dosage: 260 MG DAILY; 1ST CYCLE
     Route: 042
     Dates: start: 20140613
  9. TAXOL [Suspect]
     Active Substance: PACLITAXEL
     Dosage: 260 MG, 3RD CYCLE
     Route: 042
     Dates: start: 20140808
  10. AVASTIN [Suspect]
     Active Substance: BEVACIZUMAB
     Dosage: 820 MG, 4TH MAINTENANCE DOSE
     Route: 042
     Dates: start: 20150201
  11. CARBOPLATIN. [Suspect]
     Active Substance: CARBOPLATIN
     Dosage: 480 MG, UNK
     Route: 042
     Dates: start: 20140808
  12. TAXOL [Suspect]
     Active Substance: PACLITAXEL
     Dosage: 260 MG, 2ND CYCLE
     Route: 042
     Dates: start: 20140704
  13. TAXOL [Suspect]
     Active Substance: PACLITAXEL
     Dosage: 260 MG, 4TH CYCLE
     Route: 042
     Dates: start: 20140829
  14. TAXOL [Suspect]
     Active Substance: PACLITAXEL
     Dosage: 260 MG, 5TH CYCLE
     Route: 042
     Dates: start: 20140919
  15. AVASTIN [Suspect]
     Active Substance: BEVACIZUMAB
     Indication: OVARIAN CANCER
     Dosage: 820 MG DAILY
     Route: 042
     Dates: start: 20140613
  16. AVASTIN [Suspect]
     Active Substance: BEVACIZUMAB
     Dosage: 820 MG, 2ND MAINTENANCE DOSE
     Route: 042
     Dates: start: 20141121
  17. CARBOPLATIN. [Suspect]
     Active Substance: CARBOPLATIN
     Indication: OVARIAN CANCER
     Dosage: 480 MG DAILY
     Route: 042
     Dates: start: 20140613
  18. CARBOPLATIN. [Suspect]
     Active Substance: CARBOPLATIN
     Dosage: 480 MG, UNK
     Route: 042
     Dates: start: 20140829
  19. CARBOPLATIN. [Suspect]
     Active Substance: CARBOPLATIN
     Dosage: 480 MG, UNK
     Route: 042
     Dates: start: 20141010
  20. TRIMETON 10 MG/1 ML [Concomitant]
     Dosage: 1 DF
     Route: 042
  21. AVASTIN [Suspect]
     Active Substance: BEVACIZUMAB
     Dosage: 820 MG, 1ST MAINTENANCE DOSE
     Route: 042
     Dates: start: 20141031
  22. AVASTIN [Suspect]
     Active Substance: BEVACIZUMAB
     Dosage: 820 MG, 3RD MAINTENANCE DOSE
     Route: 042
     Dates: start: 20141212
  23. AVASTIN [Suspect]
     Active Substance: BEVACIZUMAB
     Dosage: 820 MG, 6TH MAINTENANCE DOSE
     Route: 042
     Dates: start: 20150213
  24. AVASTIN [Suspect]
     Active Substance: BEVACIZUMAB
     Dosage: 820 MG, UNK
     Route: 042
     Dates: start: 20140704
  25. AVASTIN [Suspect]
     Active Substance: BEVACIZUMAB
     Dosage: 820 MG, 5TH MAINTENANCE DOSE
     Route: 042
     Dates: start: 20150123

REACTIONS (3)
  - Blast cells present [Unknown]
  - Leukocytosis [Unknown]
  - Neutropenia [Unknown]

NARRATIVE: CASE EVENT DATE: 20140718
